FAERS Safety Report 23352355 (Version 3)
Quarter: 2024Q1

REPORT INFORMATION
  Report Type: Spontaneous
  Country: CA (occurrence: CA)
  Receive Date: 20231229
  Receipt Date: 20240215
  Transmission Date: 20240409
  Serious: Yes (Other)
  Sender: FDA-Public Use
  Company Number: CA-PFIZER INC-202300452101

PATIENT
  Age: 53 Year
  Sex: Male

DRUGS (3)
  1. RUXIENCE [Suspect]
     Active Substance: RITUXIMAB-PVVR
     Indication: Antineutrophil cytoplasmic antibody
     Dosage: 1000 MG, EVERY 6 MONTH, DAY 1 AND DAY 15
     Route: 042
     Dates: start: 20230427
  2. RUXIENCE [Suspect]
     Active Substance: RITUXIMAB-PVVR
     Dosage: 1000 MG,EVERY 6 MONTH, DAY 1 AND DAY 15, EVERY 6 MONTH
     Route: 042
     Dates: start: 20231207
  3. RUXIENCE [Suspect]
     Active Substance: RITUXIMAB-PVVR
     Dosage: 1000 MG,EVERY 6 MONTH, DAY 1 AND DAY 15(1 WEEK AND 4 DAYS )
     Route: 042
     Dates: start: 20231218

REACTIONS (3)
  - Chest discomfort [Recovered/Resolved]
  - Headache [Recovered/Resolved]
  - Off label use [Unknown]

NARRATIVE: CASE EVENT DATE: 20230427
